FAERS Safety Report 8267284-3 (Version None)
Quarter: 2012Q2

REPORT INFORMATION
  Report Type: 
  Country: None (occurrence: None)
  Receive Date: 20120405
  Receipt Date: 20120405
  Transmission Date: 20120825
  Serious: Yes (Hospitalization)
  Sender: FDA-Public Use
  Company Number: None

PATIENT
  Sex: Male
  Weight: 119.7496 kg

DRUGS (4)
  1. DOXORUBICIN HCL [Suspect]
     Dosage: ALL DRUGS GIVEN EVERY 3 WEEKS/ WITH NEULASTA
     Route: 042
     Dates: start: 20120126
  2. METHOTREXATE [Suspect]
     Indication: BLADDER CANCER
     Dosage: ALL DRUGS GIVEN EVERY 3 WEEKS / WITH NEULASTA
     Route: 042
     Dates: start: 20111222
  3. VINBLASTINE SULFATE [Suspect]
     Dosage: ALL DRUGS GIVEN EVERY 3 WEEKS/ WITH NEULASTA
     Route: 042
     Dates: start: 20120112
  4. CISPLATIN [Suspect]
     Dosage: AL DRUGS GIVEN EVERY 3 WEEKS / WITH NEULASTA
     Route: 042

REACTIONS (3)
  - CONSTIPATION [None]
  - ADVERSE EVENT [None]
  - ALOPECIA [None]
